FAERS Safety Report 10048888 (Version 2)
Quarter: 2014Q2

REPORT INFORMATION
  Report Type: Spontaneous
  Country: US (occurrence: US)
  Receive Date: 20140331
  Receipt Date: 20140418
  Transmission Date: 20141212
  Serious: No
  Sender: FDA-Public Use
  Company Number: US-PFIZER INC-2014087461

PATIENT
  Age: 86 Year
  Sex: Female
  Weight: 62.1 kg

DRUGS (3)
  1. PREMARIN [Suspect]
     Indication: ATROPHIC VULVOVAGINITIS
     Dosage: 1/2 GRAM, 2X/WEEK
     Route: 067
     Dates: start: 2007
  2. PREMARIN [Suspect]
     Indication: UTERINE PROLAPSE
     Dosage: 1 G, 2X/WEEK
     Route: 067
     Dates: start: 2012
  3. ASPIRIN [Concomitant]
     Dosage: 81 MG, UNK

REACTIONS (2)
  - Vulvovaginal pain [Recovered/Resolved]
  - Product quality issue [Unknown]
